FAERS Safety Report 7896627-5 (Version None)
Quarter: 2011Q4

REPORT INFORMATION
  Report Type: 
  Country: None (occurrence: None)
  Receive Date: 20111107
  Receipt Date: 20111028
  Transmission Date: 20120403
  Serious: Yes (Hospitalization)
  Sender: FDA-Public Use
  Company Number: US-BIOGENIDEC-2011BI041155

PATIENT
  Age: 31 Year
  Sex: Female

DRUGS (5)
  1. PAIN MEDICATION NOS [Concomitant]
  2. AVONEX [Suspect]
     Route: 030
     Dates: start: 20090515, end: 20091001
  3. AVONEX [Suspect]
     Indication: MULTIPLE SCLEROSIS
     Route: 030
     Dates: start: 20110227
  4. AVONEX [Suspect]
     Route: 030
     Dates: start: 20100624, end: 20100921
  5. AVONEX [Suspect]
     Route: 030
     Dates: start: 20060217

REACTIONS (3)
  - INAPPROPRIATE SCHEDULE OF DRUG ADMINISTRATION [None]
  - OVERDOSE [None]
  - SUICIDE ATTEMPT [None]
